FAERS Safety Report 4382154-9 (Version None)
Quarter: 2004Q2

REPORT INFORMATION
  Report Type: 
  Country: None (occurrence: None)
  Receive Date: 20040615
  Receipt Date: 20030919
  Transmission Date: 20050107
  Serious: Yes (Death, Hospitalization)
  Sender: FDA-Public Use
  Company Number: JP-SHR-03-010211

PATIENT
  Age: 50 Year
  Sex: Male
  Weight: 91 kg

DRUGS (14)
  1. QUADRAMET [Suspect]
     Indication: METASTATIC PAIN
     Dosage: 3360 MBQ, 1 DOSE, INTRAVENOUS
     Route: 042
     Dates: start: 20030513, end: 20030513
  2. MS CONTIN [Concomitant]
  3. SELOKEN  - SLOW RELEASE [Concomitant]
  4. DECADRON [Concomitant]
  5. MS CONTIN [Concomitant]
  6. LOXONIN (LOXOPROFEN SODIUM) [Concomitant]
  7. VOLTAREN [Concomitant]
  8. SELOKEN - SLOW RELEASE [Concomitant]
  9. ACECOL (TEMOCAPRIL HYDROCHLORIDE) [Concomitant]
  10. PRAVASTATIN SODIUM [Concomitant]
  11. BUFFERIN [Concomitant]
  12. FAMOTIDINE [Concomitant]
  13. URSO [Concomitant]
  14. GLYBURIDE [Concomitant]

REACTIONS (14)
  - ANAEMIA [None]
  - ANOREXIA [None]
  - APHAGIA [None]
  - DIZZINESS [None]
  - HEART RATE DECREASED [None]
  - MALIGNANT NEOPLASM PROGRESSION [None]
  - MYDRIASIS [None]
  - NAUSEA [None]
  - OXYGEN SATURATION DECREASED [None]
  - PAIN [None]
  - PROSTATE CANCER [None]
  - RESPIRATORY ARREST [None]
  - SHOCK [None]
  - VOMITING [None]
